FAERS Safety Report 21576626 (Version 1)
Quarter: 2022Q4

REPORT INFORMATION
  Report Type: Report from Study
  Country: US (occurrence: US)
  Receive Date: 20221110
  Receipt Date: 20221110
  Transmission Date: 20230112
  Serious: Yes (Hospitalization)
  Sender: FDA-Public Use
  Company Number: US-BRISTOL-MYERS SQUIBB COMPANY-2022-130366

PATIENT
  Age: 82 Year
  Sex: Female

DRUGS (11)
  1. REVLIMID [Suspect]
     Active Substance: LENALIDOMIDE
     Indication: Plasma cell myeloma
     Route: 065
     Dates: start: 202106
  2. ELIQUIS [Concomitant]
     Active Substance: APIXABAN
  3. TYLENOL [Concomitant]
     Active Substance: ACETAMINOPHEN
  4. ZOLEDRONIC ACID [Concomitant]
     Active Substance: ZOLEDRONIC ACID
  5. FOLIC ACID [Concomitant]
     Active Substance: FOLIC ACID
  6. ACYCLOVIR [Concomitant]
     Active Substance: ACYCLOVIR
  7. DEXAMETHASONE [Concomitant]
     Active Substance: DEXAMETHASONE
  8. AMLODIPINE BESYLATE [Concomitant]
     Active Substance: AMLODIPINE BESYLATE
  9. TRAMADOL [Concomitant]
     Active Substance: TRAMADOL
  10. PANTOPRAZOLE SODIUM [Concomitant]
     Active Substance: PANTOPRAZOLE SODIUM
  11. CALCIUM CARBONATE, VITAMIN D3 AND ELEMENTS TABLETS (4) [Concomitant]

REACTIONS (1)
  - Arthropathy [Unknown]

NARRATIVE: CASE EVENT DATE: 20220201
